FAERS Safety Report 5238877-2 (Version None)
Quarter: 2007Q1

REPORT INFORMATION
  Report Type: 
  Country: None (occurrence: None)
  Receive Date: 20070209
  Receipt Date: 20070129
  Transmission Date: 20070707
  Serious: Yes (Death, Hospitalization)
  Sender: FDA-Public Use
  Company Number: 2006BI017968

PATIENT
  Age: 54 Year
  Sex: Female

DRUGS (2)
  1. AVONEX [Suspect]
     Indication: MULTIPLE SCLEROSIS
     Dosage: 30 UG; QW; IM
     Route: 030
     Dates: start: 19960101, end: 20030101
  2. AVONEX [Suspect]
     Indication: MULTIPLE SCLEROSIS
     Dosage: 30 UG; QW; IM
     Route: 030
     Dates: start: 20030101, end: 20061007

REACTIONS (8)
  - ANOXIA [None]
  - APHAGIA [None]
  - APHASIA [None]
  - ASTHENIA [None]
  - DEAFNESS [None]
  - DISEASE PROGRESSION [None]
  - MOBILITY DECREASED [None]
  - MULTIPLE SCLEROSIS [None]
